FAERS Safety Report 10585202 (Version 1)
Quarter: 2014Q4

REPORT INFORMATION
  Report Type: Spontaneous
  Country: US (occurrence: US)
  Receive Date: 20141114
  Receipt Date: 20141114
  Transmission Date: 20150529
  Serious: No
  Sender: FDA-Public Use
  Company Number: US-VIVUS-2014V1000433

PATIENT
  Sex: Female
  Weight: 68.55 kg

DRUGS (4)
  1. NERVE PILL [Concomitant]
     Indication: ANXIETY
  2. QSYMIA [Suspect]
     Active Substance: PHENTERMINE HYDROCHLORIDE\TOPIRAMATE
     Indication: WEIGHT DECREASED
  3. NERVE PILL [Concomitant]
     Indication: OBSESSIVE-COMPULSIVE DISORDER
  4. NERVE PILL [Concomitant]
     Indication: IRRITABILITY

REACTIONS (10)
  - Agitation [Recovering/Resolving]
  - Anxiety [Recovering/Resolving]
  - Obsessive-compulsive disorder [Recovering/Resolving]
  - Aggression [Recovering/Resolving]
  - Irritability [Recovering/Resolving]
  - Mood altered [Not Recovered/Not Resolved]
  - Constipation [Not Recovered/Not Resolved]
  - Insomnia [Not Recovered/Not Resolved]
  - Logorrhoea [Not Recovered/Not Resolved]
  - Confusional state [Not Recovered/Not Resolved]
